FAERS Safety Report 5503836-9 (Version None)
Quarter: 2007Q4

REPORT INFORMATION
  Report Type: 
  Country: None (occurrence: None)
  Receive Date: 20071101
  Receipt Date: 20071025
  Transmission Date: 20080405
  Serious: Yes (Other)
  Sender: FDA-Public Use
  Company Number: US-BAYER-200713485BCC

PATIENT
  Sex: Female

DRUGS (1)
  1. ALKA SELTZER PLUS COLD + COUGH LIQUID [Suspect]
     Indication: NASOPHARYNGITIS
     Route: 048
     Dates: start: 20070501

REACTIONS (2)
  - CEREBRAL HAEMORRHAGE [None]
  - INTRACRANIAL ANEURYSM [None]
